FAERS Safety Report 23389146 (Version 1)
Quarter: 2024Q1

REPORT INFORMATION
  Report Type: Spontaneous
  Country: FR (occurrence: FR)
  Receive Date: 20240110
  Receipt Date: 20240110
  Transmission Date: 20240410
  Serious: Yes (Life-Threatening, Hospitalization)
  Sender: FDA-Public Use
  Company Number: FR-AFSSAPS-MP2023002262

PATIENT
  Age: 2 Year
  Sex: Male
  Weight: 10 kg

DRUGS (13)
  1. ACETAMINOPHEN [Suspect]
     Active Substance: ACETAMINOPHEN
     Indication: Pain
     Dates: start: 20231102, end: 20231123
  2. VANCOMYCIN HYDROCHLORIDE [Suspect]
     Active Substance: VANCOMYCIN HYDROCHLORIDE
     Indication: Hyperthermia
     Dates: end: 20231120
  3. RIVOTRIL [Suspect]
     Active Substance: CLONAZEPAM
     Indication: Dystonia
     Dates: start: 20231114, end: 20231116
  4. RIVOTRIL [Suspect]
     Active Substance: CLONAZEPAM
     Dosage: 2,5 MG/ML,?FORM OF ADMIN. - ORAL SOLUTION DROP
     Dates: start: 20231118, end: 20231120
  5. RIVOTRIL [Suspect]
     Active Substance: CLONAZEPAM
     Dates: end: 20231113
  6. GENTAMICIN [Suspect]
     Active Substance: GENTAMICIN
     Indication: Hyperthermia
     Dates: end: 20231120
  7. CLONIDINE HYDROCHLORIDE [Suspect]
     Active Substance: CLONIDINE HYDROCHLORIDE
     Indication: Dystonia
     Dosage: STRENGTH: 0.15 MG/ML?FORM OF ADMIN.- SOLUTION FOR INJECTION
     Dates: start: 20231117, end: 20231117
  8. CLONIDINE HYDROCHLORIDE [Suspect]
     Active Substance: CLONIDINE HYDROCHLORIDE
     Dosage: BREAKABLE TABLET?FORM OF ADMIN.- TABLET (UNCOATED, ORAL)
     Dates: start: 20231118, end: 20231120
  9. AMITRIPTYLINE HYDROCHLORIDE [Suspect]
     Active Substance: AMITRIPTYLINE HYDROCHLORIDE
     Indication: Dystonia
     Dosage: 40 MG/ML, DRINKABLE SOLUTION
     Dates: end: 20231120
  10. CEFTRIAXONE SODIUM [Suspect]
     Active Substance: CEFTRIAXONE SODIUM
     Indication: Hyperthermia
     Dates: end: 20231120
  11. IBUPROFEN [Suspect]
     Active Substance: IBUPROFEN
     Indication: Pain
     Dates: end: 20231120
  12. DOLIPRANE [Concomitant]
     Active Substance: ACETAMINOPHEN
     Indication: Product used for unknown indication
  13. TRAMADOL [Concomitant]
     Active Substance: TRAMADOL\TRAMADOL HYDROCHLORIDE
     Indication: Product used for unknown indication

REACTIONS (7)
  - Bradycardia [Recovered/Resolved]
  - Hyperthermia [Recovered/Resolved]
  - Hepatocellular injury [Recovering/Resolving]
  - Accidental overdose [Unknown]
  - Incorrect dose administered [Unknown]
  - Hypotension [Recovered/Resolved]
  - Off label use [Unknown]

NARRATIVE: CASE EVENT DATE: 20231117
